FAERS Safety Report 24957427 (Version 2)
Quarter: 2025Q3

REPORT INFORMATION
  Report Type: Spontaneous
  Country: EU (occurrence: EU)
  Receive Date: 20250211
  Receipt Date: 20250725
  Transmission Date: 20251021
  Serious: Yes (Life-Threatening)
  Sender: ROCHE
  Company Number: None

PATIENT
  Age: 36 Year
  Sex: Male

DRUGS (2)
  1. TOCILIZUMAB [Suspect]
     Active Substance: TOCILIZUMAB
     Indication: Product used for unknown indication
     Route: 058
     Dates: start: 20250108
  2. ESCITALOPRAM OXALATE [Concomitant]
     Active Substance: ESCITALOPRAM OXALATE

REACTIONS (3)
  - Localised oedema [Recovered/Resolved with Sequelae]
  - Tongue oedema [Recovered/Resolved with Sequelae]
  - Fasciitis [Recovered/Resolved with Sequelae]

NARRATIVE: CASE EVENT DATE: 20250109
